FAERS Safety Report 12242980 (Version 1)
Quarter: 2016Q2

REPORT INFORMATION
  Report Type: Spontaneous
  Country: US (occurrence: US)
  Receive Date: 20160406
  Receipt Date: 20160406
  Transmission Date: 20160815
  Serious: Yes (Other)
  Sender: FDA-Public Use
  Company Number: US-BAYER-2016-061952

PATIENT
  Sex: Female

DRUGS (1)
  1. MIRENA [Suspect]
     Active Substance: LEVONORGESTREL
     Dosage: 20 MCG/24HR, CONT
     Route: 015
     Dates: start: 201104

REACTIONS (11)
  - Pregnancy with contraceptive device [None]
  - Device dislocation [None]
  - Influenza like illness [None]
  - Gait disturbance [None]
  - Abdominal pain lower [None]
  - Adnexa uteri pain [None]
  - Pyrexia [None]
  - Headache [None]
  - Feeling abnormal [None]
  - Back pain [None]
  - Bedridden [None]

NARRATIVE: CASE EVENT DATE: 20160329
